FAERS Safety Report 20814543 (Version 1)
Quarter: 2022Q2

REPORT INFORMATION
  Report Type: Spontaneous
  Country: IT (occurrence: IT)
  Receive Date: 20220511
  Receipt Date: 20220511
  Transmission Date: 20220721
  Serious: Yes (Hospitalization)
  Sender: FDA-Public Use
  Company Number: None

PATIENT
  Age: 21 Year
  Sex: Female

DRUGS (5)
  1. ALPRAZOLAM [Suspect]
     Active Substance: ALPRAZOLAM
     Indication: Suicide attempt
     Dosage: UNIT DOSE: 10 DF
     Route: 048
     Dates: start: 20220419, end: 20220419
  2. CITALOPRAM [Suspect]
     Active Substance: CITALOPRAM HYDROBROMIDE
     Indication: Suicide attempt
     Dosage: UNIT DOSE: 28 DF, STRENGTH: 20 MG
     Route: 048
     Dates: start: 20220419, end: 20220419
  3. DIAZEPAM [Suspect]
     Active Substance: DIAZEPAM
     Indication: Suicide attempt
     Dosage: UNIT DOSE: 2 DF, STRENGTH: 5 MG/ML
     Route: 048
     Dates: start: 20220419, end: 20220419
  4. SERTRALINE [Suspect]
     Active Substance: SERTRALINE HYDROCHLORIDE
     Indication: Suicide attempt
     Dosage: UNIT DOSE: 30 DF, STRENGTH: 50 MG
     Route: 048
     Dates: start: 20220419, end: 20220419
  5. ARIPIPRAZOLE [Suspect]
     Active Substance: ARIPIPRAZOLE
     Indication: Suicide attempt
     Dosage: UNIT DOSE: 14 DF, STRENGTH: 15 MG
     Route: 048
     Dates: start: 20220419, end: 20220419

REACTIONS (4)
  - Bradyphrenia [Recovering/Resolving]
  - Disorientation [Recovering/Resolving]
  - Substance abuse [Recovering/Resolving]
  - Speech disorder [Recovering/Resolving]

NARRATIVE: CASE EVENT DATE: 20220420
